FAERS Safety Report 7130958-1 (Version None)
Quarter: 2010Q4

REPORT INFORMATION
  Report Type: 
  Country: None (occurrence: None)
  Receive Date: 20101201
  Receipt Date: 20101119
  Transmission Date: 20110411
  Serious: Yes (Hospitalization)
  Sender: FDA-Public Use
  Company Number: A0804179A

PATIENT
  Age: 56 Year
  Sex: Female
  Weight: 103.6 kg

DRUGS (1)
  1. AVANDIA [Suspect]
     Dosage: 4MG TWICE PER DAY
     Route: 065
     Dates: start: 19920101, end: 20010601

REACTIONS (1)
  - MYOCARDIAL INFARCTION [None]
